FAERS Safety Report 7965319-6 (Version None)
Quarter: 2011Q4

REPORT INFORMATION
  Report Type: 
  Country: None (occurrence: None)
  Receive Date: 20111208
  Receipt Date: 20111128
  Transmission Date: 20120403
  Serious: Yes (Other)
  Sender: FDA-Public Use
  Company Number: US-BAYER-201037685NA

PATIENT
  Age: 24 Year
  Sex: Female
  Weight: 88.889 kg

DRUGS (15)
  1. DROSPIRENONE AND ETHINYL ESTRADIOL [Suspect]
     Indication: ACNE
     Dosage: UNK
     Route: 048
     Dates: start: 20090301, end: 20090801
  2. ASCORBIC ACID [Concomitant]
     Indication: PRODUCT USED FOR UNKNOWN INDICATION
     Dosage: UNK
     Dates: start: 19900101
  3. JUNEL FE 1.5/30 [Concomitant]
     Dosage: UNK
     Dates: start: 20090314
  4. VITAMINS WITH MINERALS [Concomitant]
  5. YASMIN [Suspect]
     Indication: POLYCYSTIC OVARIES
     Dosage: UNK
     Dates: start: 20090801
  6. VITAMIN D [Concomitant]
  7. YASMIN [Suspect]
     Indication: ACNE
     Dosage: UNK
     Dates: start: 20070501, end: 20090101
  8. DROSPIRENONE AND ETHINYL ESTRADIOL [Suspect]
     Indication: POLYCYSTIC OVARIES
  9. METFORMIN HCL [Concomitant]
     Dosage: 500 MG, UNK
  10. THYROID TAB [Concomitant]
     Dosage: 0.5 G, UNK
  11. ALPHA LIPOIC ACID [Concomitant]
  12. FISH OIL [Concomitant]
     Dosage: UNK
     Dates: start: 20070501
  13. UNCODEABLE ^UNCLASSIFIABLE^ [Concomitant]
  14. LOESTRIN 1.5/30 [Concomitant]
  15. VITAMIN B COMPLEX COX [Concomitant]

REACTIONS (2)
  - CHOLECYSTITIS CHRONIC [None]
  - GALLBLADDER DISORDER [None]
